FAERS Safety Report 19128023 (Version 1)
Quarter: 2021Q2

REPORT INFORMATION
  Report Type: Spontaneous
  Country: US (occurrence: US)
  Receive Date: 20210413
  Receipt Date: 20210413
  Transmission Date: 20210717
  Serious: No
  Sender: FDA-Public Use
  Company Number: US-ALLERGAN-2028998US

PATIENT
  Age: 72 Year
  Sex: Female

DRUGS (4)
  1. RESTASIS [Concomitant]
     Active Substance: CYCLOSPORINE
     Indication: DRY EYE
     Dosage: UNK, BID
  2. LATISSE [Suspect]
     Active Substance: BIMATOPROST
     Indication: GROWTH OF EYELASHES
     Route: 061
  3. ZETIA [Concomitant]
     Active Substance: EZETIMIBE
     Indication: BLOOD CHOLESTEROL INCREASED
  4. LISINOPRIL. [Concomitant]
     Active Substance: LISINOPRIL
     Indication: HYPERTENSION

REACTIONS (8)
  - Ocular discomfort [Unknown]
  - Dry eye [Unknown]
  - Eye discharge [Unknown]
  - Ocular hyperaemia [Unknown]
  - Foreign body sensation in eyes [Unknown]
  - Inappropriate schedule of product administration [Unknown]
  - Wrong technique in product usage process [Unknown]
  - Eye irritation [Unknown]

NARRATIVE: CASE EVENT DATE: 202006
